FAERS Safety Report 11847711 (Version 1)
Quarter: 2015Q4

REPORT INFORMATION
  Report Type: Spontaneous
  Country: JP (occurrence: JP)
  Receive Date: 20151217
  Receipt Date: 20151217
  Transmission Date: 20160305
  Serious: Yes (Disabling)
  Sender: FDA-Public Use
  Company Number: PHJP1900JP001185

PATIENT
  Age: 1 Day
  Sex: Female

DRUGS (3)
  1. HUSTAZOL [Concomitant]
     Active Substance: CLOPERASTINE
     Indication: UPPER RESPIRATORY TRACT INFECTION
     Dosage: 40 MG, QD
     Route: 048
     Dates: start: 19820227, end: 19820304
  2. VOLTAREN [Suspect]
     Active Substance: DICLOFENAC SODIUM
     Indication: UPPER RESPIRATORY TRACT INFECTION
     Dosage: 100 MG, QD
     Route: 048
     Dates: start: 19820227, end: 19820304
  3. SAWACILLIN [Concomitant]
     Active Substance: AMOXICILLIN
     Indication: UPPER RESPIRATORY TRACT INFECTION
     Dosage: 1000 MG, QD
     Route: 048
     Dates: start: 19820227, end: 19820304

REACTIONS (1)
  - Persistent foetal circulation [Recovered/Resolved]
